FAERS Safety Report 22102205 (Version 1)
Quarter: 2023Q1

REPORT INFORMATION
  Report Type: Spontaneous
  Country: US (occurrence: None)
  Receive Date: 20230315
  Receipt Date: 20230315
  Transmission Date: 20230417
  Serious: No
  Sender: FDA-Public Use
  Company Number: None

PATIENT
  Age: 58 Year
  Sex: Female
  Weight: 58.5 kg

DRUGS (7)
  1. DOXYCYCLINE [Suspect]
     Active Substance: DOXYCYCLINE
     Indication: Upper respiratory tract infection
     Dosage: FREQUENCY : TWICE A DAY;?
     Route: 048
     Dates: start: 20230304, end: 20230305
  2. PROBIOTICS NOS [Concomitant]
     Active Substance: PROBIOTICS NOS
  3. MUCINEX [Concomitant]
     Active Substance: GUAIFENESIN
  4. ALLEGRA [Concomitant]
     Active Substance: FEXOFENADINE HYDROCHLORIDE
  5. TYLENOL [Concomitant]
     Active Substance: ACETAMINOPHEN
  6. MOTRIN [Concomitant]
     Active Substance: IBUPROFEN
  7. PEPCID [Concomitant]
     Active Substance: FAMOTIDINE

REACTIONS (15)
  - Hypersensitivity [None]
  - Eye swelling [None]
  - Lacrimation increased [None]
  - Inflammation [None]
  - Burning sensation [None]
  - Nasal congestion [None]
  - Tongue erythema [None]
  - Plicated tongue [None]
  - Tongue discomfort [None]
  - Oral mucosal erythema [None]
  - Tongue discolouration [None]
  - Swollen tongue [None]
  - Dry mouth [None]
  - Glossodynia [None]
  - Aphthous ulcer [None]

NARRATIVE: CASE EVENT DATE: 20230305
